FAERS Safety Report 9734780 (Version 1)
Quarter: 2013Q4

REPORT INFORMATION
  Report Type: Spontaneous
  Country: SY (occurrence: SY)
  Receive Date: 20131206
  Receipt Date: 20131206
  Transmission Date: 20140711
  Serious: Yes (Other)
  Sender: FDA-Public Use
  Company Number: SY-JNJFOC-20131118361

PATIENT
  Age: 47 Year
  Sex: Female
  Weight: 75 kg

DRUGS (4)
  1. REMICADE [Suspect]
     Indication: UVEITIS
     Dosage: 5 MG/KG
     Route: 042
     Dates: start: 20120902, end: 20130821
  2. METHOTREXATE [Concomitant]
     Indication: UVEITIS
     Route: 065
     Dates: start: 201310
  3. PREDNOL [Concomitant]
     Indication: UVEITIS
     Route: 065
  4. PREDNOL [Concomitant]
     Indication: UVEITIS
     Route: 065
     Dates: start: 2008

REACTIONS (8)
  - Peroneal nerve palsy [Not Recovered/Not Resolved]
  - Spondylolisthesis [Not Recovered/Not Resolved]
  - Spinal column stenosis [Not Recovered/Not Resolved]
  - Intervertebral disc degeneration [Not Recovered/Not Resolved]
  - Intervertebral disc protrusion [Not Recovered/Not Resolved]
  - Demyelination [Not Recovered/Not Resolved]
  - Urinary tract infection [Unknown]
  - Off label use [Unknown]
